FAERS Safety Report 9189495 (Version 1)
Quarter: 2013Q1

REPORT INFORMATION
  Report Type: Spontaneous
  Country: US (occurrence: US)
  Receive Date: 20130326
  Receipt Date: 20130326
  Transmission Date: 20140127
  Serious: Yes (Other)
  Sender: FDA-Public Use
  Company Number: US-JNJFOC-20130310836

PATIENT
  Age: 66 Year
  Sex: Female
  Weight: 111.59 kg

DRUGS (11)
  1. DOXORUBICIN HYDROCHLORIDE [Suspect]
     Indication: ENDOMETRIAL CANCER
     Dosage: DAY 1 ON A 28 DAY CYCLE
     Route: 042
  2. DOXORUBICIN HYDROCHLORIDE [Suspect]
     Indication: ENDOMETRIAL CANCER
     Dosage: ON DAYS 1, 8 AND 15 ON A 28 DAY CYCLE
     Route: 042
     Dates: start: 20120816, end: 20120913
  3. CISPLATIN [Suspect]
     Indication: ENDOMETRIAL CANCER
     Route: 042
  4. PACLITAXEL [Suspect]
     Indication: ENDOMETRIAL CANCER
     Dosage: DAYS 1, 8 AND 15 ON A 28 DAY CYCLE
     Route: 042
  5. ATENOLOL [Concomitant]
     Route: 048
  6. HYDROCHLOROTHIAZIDE [Concomitant]
     Route: 048
  7. HYDROCODONE ACETAMINOPHEN [Concomitant]
     Route: 048
  8. ONDANSETRON HYDROCHLORIDE [Concomitant]
     Route: 048
  9. PROCHLORPERAZINE MALEATE [Concomitant]
     Indication: NAUSEA
     Route: 048
  10. WARFARIN [Concomitant]
     Route: 048
  11. XANAX [Concomitant]
     Route: 048

REACTIONS (4)
  - Carbohydrate antigen 125 increased [Unknown]
  - Ejection fraction decreased [Unknown]
  - Carcinoembryonic antigen increased [Unknown]
  - Off label use [Unknown]
